FAERS Safety Report 7128912-9 (Version None)
Quarter: 2010Q4

REPORT INFORMATION
  Report Type: 
  Country: None (occurrence: None)
  Receive Date: 20101130
  Receipt Date: 20101122
  Transmission Date: 20110411
  Serious: Yes (Life-Threatening, Hospitalization, Disabling)
  Sender: FDA-Public Use
  Company Number: A0896500A

PATIENT
  Age: 63 Year
  Sex: Male

DRUGS (7)
  1. SEREVENT [Suspect]
     Route: 055
     Dates: start: 19930101
  2. ASMANEX TWISTHALER [Suspect]
     Dosage: 220MCG UNKNOWN
     Route: 055
  3. FLOVENT [Suspect]
     Route: 055
     Dates: start: 20050101
  4. FORADIL [Suspect]
     Dates: start: 20080601
  5. ACIPHEX [Concomitant]
  6. DIOVAN [Concomitant]
  7. CHLORTHALIDONE [Concomitant]

REACTIONS (7)
  - CHEST DISCOMFORT [None]
  - DRUG INEFFECTIVE [None]
  - EPISTAXIS [None]
  - OFF LABEL USE [None]
  - RESPIRATORY TRACT IRRITATION [None]
  - STAPHYLOCOCCAL INFECTION [None]
  - STAPHYLOCOCCAL SEPSIS [None]
